FAERS Safety Report 9882180 (Version 2)
Quarter: 2014Q1

REPORT INFORMATION
  Report Type: Spontaneous
  Country: US (occurrence: US)
  Receive Date: 20140207
  Receipt Date: 20140326
  Transmission Date: 20141002
  Serious: Yes (Other)
  Sender: FDA-Public Use
  Company Number: US-TEVA-461590USA

PATIENT
  Age: 22 Year
  Sex: Female

DRUGS (2)
  1. CLARAVIS [Suspect]
     Indication: ACNE
     Dates: start: 201307, end: 20140103
  2. CITALOPRAM HYDROBROMIDE [Concomitant]

REACTIONS (8)
  - Depression suicidal [Not Recovered/Not Resolved]
  - Depression [Not Recovered/Not Resolved]
  - Agitation [Unknown]
  - Affective disorder [Unknown]
  - Mental disorder [Unknown]
  - Arthralgia [Unknown]
  - Arthralgia [Unknown]
  - Alopecia [Recovering/Resolving]
